FAERS Safety Report 5440978-0 (Version None)
Quarter: 2007Q3

REPORT INFORMATION
  Report Type: 
  Country: None (occurrence: None)
  Receive Date: 20070831
  Receipt Date: 20070820
  Transmission Date: 20080115
  Serious: Yes (Hospitalization)
  Sender: FDA-Public Use
  Company Number: US-PFIZER INC-2007028088

PATIENT
  Sex: Female
  Weight: 60.8 kg

DRUGS (15)
  1. SUTENT [Suspect]
     Indication: MALIGNANT MELANOMA
     Route: 048
     Dates: start: 20070307, end: 20070327
  2. TEMOZOLOMIDE [Suspect]
     Indication: MALIGNANT MELANOMA
     Route: 048
     Dates: start: 20070228, end: 20070306
  3. TEMOZOLOMIDE [Suspect]
     Route: 048
     Dates: start: 20070314, end: 20070320
  4. PENTOXIFYLLINE [Concomitant]
  5. VITAMIN CAP [Concomitant]
  6. CALCIUM CARBONATE [Concomitant]
  7. VITAMIN D [Concomitant]
     Dates: start: 20060201
  8. TYLENOL (CAPLET) [Concomitant]
     Dates: start: 20070307
  9. AMBIEN [Concomitant]
     Dates: start: 20070310
  10. COLACE [Concomitant]
     Dates: start: 20070228
  11. AMOXICILLIN [Concomitant]
     Dates: start: 20070302, end: 20070302
  12. COMPAZINE [Concomitant]
     Dates: start: 20070328
  13. ZOFRAN [Concomitant]
     Dates: start: 20070302
  14. PROAIR HFA [Concomitant]
     Dates: start: 20070317
  15. BENADRYL [Concomitant]
     Dates: start: 20070316

REACTIONS (2)
  - HAEMOGLOBIN DECREASED [None]
  - PNEUMONIA [None]
